FAERS Safety Report 24745401 (Version 1)
Quarter: 2024Q4

REPORT INFORMATION
  Report Type: Spontaneous
  Country: KR (occurrence: KR)
  Receive Date: 20241217
  Receipt Date: 20241217
  Transmission Date: 20250115
  Serious: Yes (Other)
  Sender: ORGANON
  Company Number: KR-ORGANON-O2412KOR001386

PATIENT
  Age: 36 Year
  Sex: Male
  Weight: 55 kg

DRUGS (36)
  1. NASONEX [Suspect]
     Active Substance: MOMETASONE FUROATE
     Indication: Nasal congestion
     Dosage: 140 DOSAGE FORM, QD
     Dates: start: 20211115, end: 20211115
  2. NASONEX [Suspect]
     Active Substance: MOMETASONE FUROATE
     Dosage: 140 DOSAGE FORM, QD
     Dates: start: 20211201, end: 20211201
  3. HUMAN IMMUNOGLOBULIN G [Concomitant]
     Active Substance: HUMAN IMMUNOGLOBULIN G
     Indication: Infection prophylaxis
     Dosage: 28500 MILLIGRAM, QD
     Dates: start: 20211117, end: 20211117
  4. HUMAN IMMUNOGLOBULIN G [Concomitant]
     Active Substance: HUMAN IMMUNOGLOBULIN G
     Dosage: 26500 MILLIGRAM, QD
     Dates: start: 20211201, end: 20211201
  5. ACYCLOVIR [Concomitant]
     Active Substance: ACYCLOVIR
     Indication: Infection prophylaxis
     Dosage: 800 MILLIGRAM, QD
     Dates: start: 20211209, end: 20211215
  6. ACYCLOVIR [Concomitant]
     Active Substance: ACYCLOVIR
     Dosage: 400 MILLIGRAM, QD
     Dates: start: 20211216
  7. ACYCLOVIR [Concomitant]
     Active Substance: ACYCLOVIR
     Indication: Infection prophylaxis
     Dosage: 570 MILLIGRAM, QD
     Dates: start: 20211101, end: 20211208
  8. ALLOPURINOL [Concomitant]
     Active Substance: ALLOPURINOL
     Indication: Hyperuricaemia
     Dosage: 300 MILLIGRAM, QD
     Dates: start: 20211104, end: 20211108
  9. FLUDARABINE PHOSPHATE [Concomitant]
     Active Substance: FLUDARABINE PHOSPHATE
     Indication: Acute lymphocytic leukaemia
     Dosage: 8 MILLIGRAM, QD
     Dates: start: 20211104, end: 20211108
  10. CYTARABINE [Concomitant]
     Active Substance: CYTARABINE
     Indication: Acute lymphocytic leukaemia
     Dosage: 4.8 GRAM, QD
     Dates: start: 20211106, end: 20211106
  11. DEXAMETHASONE SODIUM PHOSPHATE [Concomitant]
     Active Substance: DEXAMETHASONE SODIUM PHOSPHATE
     Indication: Acute lymphocytic leukaemia
     Dosage: 10 MILLIGRAM, QD
     Dates: start: 20211101, end: 20211103
  12. METHYLPREDNISOLONE SODIUM SUCCINATE [Concomitant]
     Active Substance: METHYLPREDNISOLONE SODIUM SUCCINATE
     Indication: Acute lymphocytic leukaemia
     Dosage: 250 MILLIGRAM, QD
     Dates: start: 20211110, end: 20211110
  13. SULFAMETHOXAZOLE AND TRIMETHOPRIM [Concomitant]
     Active Substance: SULFAMETHOXAZOLE\TRIMETHOPRIM
     Indication: Infection
     Dosage: 400 MILLIGRAM, QD
     Dates: start: 20211028
  14. MYCOPHENOLATE MOFETIL [Concomitant]
     Active Substance: MYCOPHENOLATE MOFETIL
     Indication: Graft versus host disease
     Dosage: 2000 MILLIGRAM, QD
     Dates: start: 20211109, end: 20211222
  15. MYCOPHENOLATE MOFETIL [Concomitant]
     Active Substance: MYCOPHENOLATE MOFETIL
     Dosage: 1000 MILLIGRAM, QD
     Dates: start: 20211223, end: 20211229
  16. MYCOPHENOLATE MOFETIL [Concomitant]
     Active Substance: MYCOPHENOLATE MOFETIL
     Dosage: 500 MILLIGRAM, QD
     Dates: start: 20211230, end: 20220105
  17. TACROLIMUS [Concomitant]
     Active Substance: TACROLIMUS
     Indication: Graft versus host disease
     Dosage: 1.7 MILLIGRAM, QD
     Dates: start: 20211109, end: 20211115
  18. TACROLIMUS [Concomitant]
     Active Substance: TACROLIMUS
     Dosage: 1.3 MILLIGRAM, QD
     Dates: start: 20211116, end: 20211118
  19. TACROLIMUS [Concomitant]
     Active Substance: TACROLIMUS
     Dosage: 1 MILLIGRAM, QD
     Dates: start: 20211119, end: 20211129
  20. TACROLIMUS [Concomitant]
     Active Substance: TACROLIMUS
     Dosage: 0.8 MILLIGRAM, QD
     Dates: start: 20211130, end: 20211202
  21. TACROLIMUS [Concomitant]
     Active Substance: TACROLIMUS
     Dosage: 0.6 MILLIGRAM, QD
     Dates: start: 20211203, end: 20211206
  22. TACROLIMUS [Concomitant]
     Active Substance: TACROLIMUS
     Dosage: 0.4 MILLIGRAM, QD
     Dates: start: 20211207, end: 20211209
  23. TACROLIMUS [Concomitant]
     Active Substance: TACROLIMUS
     Dosage: 1 MILLIGRAM, QD
     Dates: start: 20211209, end: 20220126
  24. LEVOTHYROXINE SODIUM [Concomitant]
     Active Substance: LEVOTHYROXINE SODIUM
     Indication: Papillary thyroid cancer
     Dosage: 125 MICROGRAM, QD
     Dates: start: 20211101, end: 20220105
  25. NICARDIPINE HYDROCHLORIDE [Concomitant]
     Active Substance: NICARDIPINE HYDROCHLORIDE
     Indication: Hypertension
     Dosage: 2 MILLIGRAM, QD
     Dates: start: 20211110, end: 20211110
  26. LOPERAMIDE HYDROCHLORIDE [Concomitant]
     Active Substance: LOPERAMIDE HYDROCHLORIDE
     Indication: Diarrhoea
     Dosage: 4 MILLIGRAM, QD
     Dates: start: 20211113, end: 20211119
  27. MONTMORILLONITE [Concomitant]
     Active Substance: MONTMORILLONITE
     Indication: Diarrhoea
     Dosage: 60 MILLILITER, QD
     Dates: start: 20211109, end: 20211117
  28. MUPIROCIN [Concomitant]
     Active Substance: MUPIROCIN
     Indication: Folliculitis
     Dosage: 10 GRAM, QD
     Dates: start: 20211112, end: 20211112
  29. MUPIROCIN [Concomitant]
     Active Substance: MUPIROCIN
     Dosage: 10 GRAM, QD
     Dates: start: 20211115, end: 20211115
  30. MUPIROCIN [Concomitant]
     Active Substance: MUPIROCIN
     Dosage: 10 GRAM, QD
     Dates: start: 20211126, end: 20211126
  31. CIPROFLOXACIN HYDROCHLORIDE [Concomitant]
     Active Substance: CIPROFLOXACIN HYDROCHLORIDE
     Indication: Pyrexia
     Dosage: 1000 MILLIGRAM, QD
     Dates: start: 20211109, end: 20211117
  32. CEFEPIME HYDROCHLORIDE [Concomitant]
     Active Substance: CEFEPIME HYDROCHLORIDE
     Indication: Pyrexia
     Dosage: 4 GRAM, QD
     Dates: start: 20211118, end: 20211125
  33. TEICOPLANIN [Concomitant]
     Active Substance: TEICOPLANIN
     Indication: Pyrexia
     Dosage: 400 MILLIGRAM, QD
     Dates: start: 20211118, end: 20211207
  34. PIPERACILLIN AND TAZOBACTAM [Concomitant]
     Active Substance: PIPERACILLIN SODIUM\TAZOBACTAM SODIUM
     Indication: Pyrexia
     Dosage: 13.5 MILLIGRAM, QD
     Dates: start: 20211126, end: 20211207
  35. TRAMADOL HYDROCHLORIDE [Concomitant]
     Active Substance: TRAMADOL HYDROCHLORIDE
     Indication: Pyrexia
     Dosage: 50 MILLIGRAM, QD
     Dates: start: 20211118, end: 20211118
  36. FEXOFENADINE HYDROCHLORIDE [Concomitant]
     Active Substance: FEXOFENADINE HYDROCHLORIDE
     Indication: Graft versus host disease
     Dosage: 60 MILLIGRAM, QD
     Dates: start: 20220127, end: 20220202

REACTIONS (8)
  - Graft versus host disease in skin [Recovering/Resolving]
  - Folliculitis [Recovered/Resolved]
  - Stomatitis [Recovered/Resolved]
  - Nasal congestion [Recovered/Resolved]
  - Pyrexia [Recovered/Resolved]
  - Anal haemorrhage [Recovered/Resolved]
  - Hyperuricaemia [Recovering/Resolving]
  - Product use in unapproved indication [Unknown]

NARRATIVE: CASE EVENT DATE: 20211112
